FAERS Safety Report 5714219-0 (Version None)
Quarter: 2008Q2

REPORT INFORMATION
  Report Type: 
  Country: None (occurrence: None)
  Receive Date: 20080423
  Receipt Date: 20080222
  Transmission Date: 20081010
  Serious: No
  Sender: FDA-Public Use
  Company Number: US-KINGPHARMUSA00001-K200800236

PATIENT

DRUGS (1)
  1. SKELAXIN [Suspect]
     Dosage: UNK, SINGLE

REACTIONS (1)
  - STOMACH DISCOMFORT [None]
